FAERS Safety Report 9773331 (Version 2)
Quarter: 2013Q4

REPORT INFORMATION
  Report Type: Report from Study
  Country: BE (occurrence: BE)
  Receive Date: 20131219
  Receipt Date: 20131219
  Transmission Date: 20140711
  Serious: Yes (Hospitalization)
  Sender: FDA-Public Use
  Company Number: BE-ABBVIE-13P-013-1129668-00

PATIENT
  Age: 61 Year
  Sex: Female
  Weight: 59 kg

DRUGS (2)
  1. HUMIRA [Suspect]
     Indication: RHEUMATOID ARTHRITIS
     Route: 058
     Dates: end: 20130706
  2. HUMIRA [Suspect]
     Dates: end: 20130826

REACTIONS (5)
  - C-reactive protein increased [Recovered/Resolved]
  - Hip arthroplasty [Unknown]
  - Device related infection [Unknown]
  - Infection [Recovered/Resolved]
  - Pyrexia [Recovered/Resolved]
